FAERS Safety Report 26195096 (Version 1)
Quarter: 2025Q4

REPORT INFORMATION
  Report Type: Spontaneous
  Country: US (occurrence: US)
  Receive Date: 20251224
  Receipt Date: 20251224
  Transmission Date: 20260117
  Serious: Yes (Death)
  Sender: BEIGENE
  Company Number: US-BEONEMEDICINES-BGN-2025-023611

PATIENT
  Sex: Female

DRUGS (2)
  1. BRUKINSA [Suspect]
     Active Substance: ZANUBRUTINIB
     Indication: Product used for unknown indication
  2. BRUKINSA [Suspect]
     Active Substance: ZANUBRUTINIB

REACTIONS (1)
  - Death [Fatal]
